FAERS Safety Report 6965633-7 (Version None)
Quarter: 2010Q3

REPORT INFORMATION
  Report Type: 
  Country: None (occurrence: None)
  Receive Date: 20100903
  Receipt Date: 20100823
  Transmission Date: 20110219
  Serious: Yes (Hospitalization)
  Sender: FDA-Public Use
  Company Number: FR-JNJFOC-20100900944

PATIENT
  Sex: Female

DRUGS (2)
  1. IXPRIM [Suspect]
     Indication: PAIN
     Route: 048
  2. MYOLASTAN [Suspect]
     Indication: MUSCLE RELAXANT THERAPY
     Route: 048

REACTIONS (4)
  - DIZZINESS [None]
  - FALL [None]
  - HEADACHE [None]
  - MALAISE [None]
